FAERS Safety Report 21116375 (Version 2)
Quarter: 2022Q3

REPORT INFORMATION
  Report Type: Report from Study
  Country: US (occurrence: US)
  Receive Date: 20220721
  Receipt Date: 20220801
  Transmission Date: 20221027
  Serious: Yes (Other)
  Sender: FDA-Public Use
  Company Number: US-BRISTOL-MYERS SQUIBB COMPANY-2022-075303

PATIENT
  Age: 78 Year
  Sex: Male
  Weight: 94.8 kg

DRUGS (28)
  1. RICOLINOSTAT [Suspect]
     Active Substance: RICOLINOSTAT
     Indication: Plasma cell myeloma refractory
     Dosage: FREQ: DAYS 1-21?THERAPY WAS INTERRUPTED ON 12-JUL-2022
     Route: 048
     Dates: start: 20150408, end: 20220712
  2. POMALIDOMIDE [Suspect]
     Active Substance: POMALIDOMIDE
     Indication: Plasma cell myeloma refractory
     Dosage: FREQ: DAYS 1-21
     Route: 048
     Dates: start: 20150408, end: 20220712
  3. DEXAMETHASONE [Suspect]
     Active Substance: DEXAMETHASONE
     Indication: Plasma cell myeloma refractory
     Dosage: FREQ: DAYS 1. 8, 15, 22
     Route: 048
     Dates: start: 20150408, end: 20220712
  4. FUROSEMIDE [Concomitant]
     Active Substance: FUROSEMIDE
     Indication: Atrial fibrillation
     Dosage: DAILY
     Dates: start: 20180718
  5. OLMESARTAN [Concomitant]
     Active Substance: OLMESARTAN
     Indication: Hypertension
     Dosage: DAILY
     Route: 048
     Dates: start: 20190829
  6. ALLOPURINOL [Concomitant]
     Active Substance: ALLOPURINOL
     Indication: Gout
     Route: 048
     Dates: start: 20080908
  7. ASPIRIN [Concomitant]
     Active Substance: ASPIRIN
     Indication: Prophylaxis
     Dosage: DAILY
     Route: 048
     Dates: start: 20090127
  8. FOLIC ACID [Concomitant]
     Active Substance: FOLIC ACID
     Indication: Nutritional supplementation
     Dosage: DAILY
     Route: 048
     Dates: start: 20080908
  9. OMEPRAZOLE [Concomitant]
     Active Substance: OMEPRAZOLE
     Indication: Prophylaxis
     Dosage: DAILY
     Route: 048
     Dates: start: 20080908
  10. PLAVIX [Concomitant]
     Active Substance: CLOPIDOGREL BISULFATE
     Indication: Prophylaxis
     Dosage: DAILY
     Route: 048
     Dates: start: 20150218
  11. VALSARTAN AND HYDROCHLOROTHIAZIDE [Concomitant]
     Active Substance: HYDROCHLOROTHIAZIDE\VALSARTAN
     Indication: Hypertension
     Dosage: 320-12.5MG,EVRY EVENING
     Route: 048
     Dates: start: 20150218
  12. VITAMIN B12 [Concomitant]
     Active Substance: CYANOCOBALAMIN
     Indication: Nutritional supplementation
     Dosage: DAILY
     Route: 048
     Dates: start: 20150218
  13. ZOLPIDEM TARTRATE [Concomitant]
     Active Substance: ZOLPIDEM TARTRATE
     Indication: Insomnia
     Dosage: DAILY AT BEDTIME
     Route: 048
     Dates: start: 20150218
  14. BACTRIM [Concomitant]
     Active Substance: SULFAMETHOXAZOLE\TRIMETHOPRIM
     Indication: Prostatitis
     Dosage: AS NEEDED
     Route: 048
     Dates: start: 200809
  15. COMPAZINE [Concomitant]
     Active Substance: PROCHLORPERAZINE MALEATE
     Indication: Nausea
     Route: 048
     Dates: start: 201508
  16. VESICARE [Concomitant]
     Active Substance: SOLIFENACIN SUCCINATE
     Indication: Prostatitis
     Dosage: DAILY
     Route: 048
     Dates: start: 20160302
  17. CARVEDILOL [Concomitant]
     Active Substance: CARVEDILOL
     Indication: Hypertension
     Dosage: DAILY
     Route: 048
     Dates: start: 20151029
  18. MAGNESIUM [Concomitant]
     Active Substance: MAGNESIUM
     Indication: Muscle spasms
     Dosage: DAILY
     Route: 048
     Dates: start: 201601
  19. METOPROLOL SUCCINATE [Concomitant]
     Active Substance: METOPROLOL SUCCINATE
     Indication: Prophylaxis
     Dosage: DAILY
     Route: 048
     Dates: start: 20180910
  20. APIXABAN [Concomitant]
     Active Substance: APIXABAN
     Indication: Thrombosis prophylaxis
     Dosage: DAILY
     Route: 048
     Dates: start: 20180209
  21. ACETAMINOPHEN [Concomitant]
     Active Substance: ACETAMINOPHEN
     Indication: Arthralgia
     Dosage: EVERY 6HOURS, PRN
     Route: 048
     Dates: start: 20200315
  22. AMLODIPINE [Concomitant]
     Active Substance: AMLODIPINE BESYLATE
     Indication: Hypertension
     Route: 048
     Dates: start: 20181031
  23. ATORVASTATIN [Concomitant]
     Active Substance: ATORVASTATIN
     Indication: Hypercholesterolaemia
     Dosage: DAILY
     Route: 048
     Dates: start: 20180806
  24. BUPROPION [Concomitant]
     Active Substance: BUPROPION
     Indication: Depression
     Dosage: DAILY
     Route: 048
     Dates: start: 20180523
  25. CHOLECALCIFEROL [Concomitant]
     Active Substance: CHOLECALCIFEROL
     Indication: Supplementation therapy
     Dosage: DAILY
     Route: 048
     Dates: start: 20200304
  26. MELATONIN [Concomitant]
     Active Substance: MELATONIN
     Indication: Insomnia
     Dosage: DAILY
     Route: 048
     Dates: start: 20190424
  27. SENNA [Concomitant]
     Active Substance: SENNA LEAF\SENNOSIDES\SENNOSIDES A AND B
     Indication: Constipation
     Route: 048
     Dates: start: 20200310
  28. DOFETILIDE [Concomitant]
     Active Substance: DOFETILIDE
     Indication: Atrial fibrillation
     Route: 048
     Dates: start: 20201014

REACTIONS (1)
  - Acute kidney injury [Not Recovered/Not Resolved]

NARRATIVE: CASE EVENT DATE: 20220713
